FAERS Safety Report 5420493-0 (Version None)
Quarter: 2007Q3

REPORT INFORMATION
  Report Type: 
  Country: None (occurrence: None)
  Receive Date: 20070718
  Receipt Date: 20061026
  Transmission Date: 20080115
  Serious: Yes (Hospitalization)
  Sender: FDA-Public Use
  Company Number: 2006081130

PATIENT
  Age: 54 Year
  Sex: Female

DRUGS (3)
  1. CELEBREX [Suspect]
     Dosage: ONE OR TWO (200 MG), ORAL
     Route: 048
     Dates: start: 20020830
  2. BEXTRA [Suspect]
     Dosage: 40 MG (20 MG, 2 IN 1 D), ORAL
     Route: 048
     Dates: start: 20020415, end: 20021217
  3. VIOXX [Suspect]
     Dosage: 25 MG (25 MG, 1 IN 1 D), ORAL
     Route: 048
     Dates: start: 20000205, end: 20020120

REACTIONS (1)
  - DEEP VEIN THROMBOSIS [None]
